FAERS Safety Report 11646697 (Version 1)
Quarter: 2015Q4

REPORT INFORMATION
  Report Type: Spontaneous
  Country: US (occurrence: US)
  Receive Date: 20151020
  Receipt Date: 20151020
  Transmission Date: 20160304
  Serious: No
  Sender: FDA-Public Use
  Company Number: US-ROCHE-ITM201504IM013204

PATIENT
  Age: 63 Year
  Sex: Male

DRUGS (5)
  1. ESBRIET [Suspect]
     Active Substance: PIRFENIDONE
     Indication: IDIOPATHIC PULMONARY FIBROSIS
     Dosage: 9 CAPSULE
     Route: 048
     Dates: start: 201503
  2. ASPIRIN. [Concomitant]
     Active Substance: ASPIRIN
  3. ESBRIET [Suspect]
     Active Substance: PIRFENIDONE
     Route: 048
     Dates: end: 20150330
  4. ESBRIET [Suspect]
     Active Substance: PIRFENIDONE
     Dosage: 3 CPASULE 3 TIMES A DAY
     Route: 048
     Dates: start: 20150420
  5. ESBRIET [Suspect]
     Active Substance: PIRFENIDONE
     Dosage: 2 CPASULE 3 TIMES A DAY
     Route: 048
     Dates: start: 20150402

REACTIONS (3)
  - Fatigue [Unknown]
  - Sunburn [Unknown]
  - Nausea [Unknown]

NARRATIVE: CASE EVENT DATE: 201503
